FAERS Safety Report 18541844 (Version 1)
Quarter: 2020Q4

REPORT INFORMATION
  Report Type: Report from Study
  Country: US (occurrence: US)
  Receive Date: 20201124
  Receipt Date: 20201124
  Transmission Date: 20210114
  Serious: Yes (Hospitalization)
  Sender: FDA-Public Use
  Company Number: US-BIOMARINAP-US-2018-120211

PATIENT
  Age: 32 Year
  Sex: Female
  Weight: 62.59 kg

DRUGS (1)
  1. KUVAN [Suspect]
     Active Substance: SAPROPTERIN DIHYDROCHLORIDE
     Indication: PHENYLKETONURIA
     Dosage: 20 MILLIGRAM/KILOGRAM, QD
     Route: 048
     Dates: start: 20070620

REACTIONS (2)
  - Pregnancy [Recovered/Resolved]
  - Amino acid level decreased [Recovered/Resolved]

NARRATIVE: CASE EVENT DATE: 20180916
